FAERS Safety Report 7879272-7 (Version None)
Quarter: 2011Q4

REPORT INFORMATION
  Report Type: 
  Country: None (occurrence: None)
  Receive Date: 20111101
  Receipt Date: 20111020
  Transmission Date: 20120403
  Serious: Yes (Other)
  Sender: FDA-Public Use
  Company Number: US-BAYER-2011-060928

PATIENT
  Age: 28 Year
  Sex: Female
  Weight: 72.109 kg

DRUGS (1)
  1. YAZ [Suspect]
     Indication: CONTRACEPTION
     Dosage: UNK
     Dates: start: 20090301, end: 20090801

REACTIONS (9)
  - FEAR [None]
  - INJURY [None]
  - DEEP VEIN THROMBOSIS [None]
  - THROMBOSIS [None]
  - ANXIETY [None]
  - THROMBOPHLEBITIS SUPERFICIAL [None]
  - MENTAL DISORDER [None]
  - PAIN [None]
  - EMOTIONAL DISTRESS [None]
